FAERS Safety Report 7736671-1 (Version None)
Quarter: 2011Q3

REPORT INFORMATION
  Report Type: 
  Country: None (occurrence: None)
  Receive Date: 20110908
  Receipt Date: 20110905
  Transmission Date: 20111222
  Serious: Yes (Other)
  Sender: FDA-Public Use
  Company Number: FR-PFIZER INC-2011206685

PATIENT
  Age: 35 Year
  Sex: Female

DRUGS (2)
  1. LEXOMIL [Concomitant]
     Indication: SLEEP DISORDER
     Dosage: IN EVENING
  2. CELEBREX [Suspect]
     Indication: ANKYLOSING SPONDYLITIS
     Dosage: 200 MG, 1X/DAY

REACTIONS (4)
  - POLYURIA [None]
  - RASH [None]
  - DRUG INEFFECTIVE [None]
  - WEIGHT DECREASED [None]
